FAERS Safety Report 23050126 (Version 1)
Quarter: 2023Q4

REPORT INFORMATION
  Report Type: Report from Study
  Country: US (occurrence: US)
  Receive Date: 20231010
  Receipt Date: 20231010
  Transmission Date: 20240109
  Serious: Yes (Hospitalization)
  Sender: FDA-Public Use
  Company Number: US-BoehringerIngelheim-2023-BI-265109

PATIENT
  Age: 13 Year
  Sex: Female
  Weight: 45.4 kg

DRUGS (4)
  1. NINTEDANIB [Suspect]
     Active Substance: NINTEDANIB
     Indication: Pulmonary fibrosis
     Route: 048
     Dates: start: 20201023
  2. Budesonide-formoterol 160-4.5mcg/act inhaler [Concomitant]
     Indication: Bronchiectasis
     Dosage: 4 PUFFS
     Route: 055
     Dates: start: 20230713
  3. VORICONAZOLE [Concomitant]
     Active Substance: VORICONAZOLE
     Indication: Abdominal abscess
     Route: 048
     Dates: start: 20230907
  4. VORICONAZOLE [Concomitant]
     Active Substance: VORICONAZOLE
     Indication: Fungal infection

REACTIONS (1)
  - Subcutaneous abscess [Not Recovered/Not Resolved]

NARRATIVE: CASE EVENT DATE: 20230929
